FAERS Safety Report 6619778-1 (Version None)
Quarter: 2010Q1

REPORT INFORMATION
  Report Type: 
  Country: None (occurrence: None)
  Receive Date: 20100309
  Receipt Date: 20100302
  Transmission Date: 20100710
  Serious: Yes (Other)
  Sender: FDA-Public Use
  Company Number: PHHY2010BR01731

PATIENT
  Sex: Female

DRUGS (12)
  1. EXELON [Suspect]
     Indication: DEMENTIA ALZHEIMER'S TYPE
     Dosage: UNK
     Route: 048
     Dates: start: 20070101, end: 20070101
  2. EXELON [Suspect]
     Dosage: 1.5 MG, BID
     Route: 048
     Dates: start: 20070101
  3. EXELON [Suspect]
     Dosage: 3 MG, TID
     Route: 048
  4. EXELON [Suspect]
     Dosage: 4.5 MG
     Route: 048
     Dates: start: 20090510
  5. EXELON [Suspect]
     Dosage: 3 MG, TID
     Route: 048
  6. GALVUS [Concomitant]
     Dosage: 1DF
  7. DIAMICRON [Concomitant]
     Dosage: UNK
  8. ARADOIS [Concomitant]
     Indication: BLOOD PRESSURE INCREASED
     Dosage: 0.5 DF
  9. AMLODIPINE BESYLATE [Concomitant]
     Indication: BLOOD PRESSURE INCREASED
     Dosage: 2.5 MG DAILY
     Route: 048
  10. PAROXETINE HYDROCHLORIDE [Concomitant]
     Dosage: UNK
     Dates: start: 20060101
  11. ALPRAZOLAM [Concomitant]
     Dosage: UNK
     Route: 048
     Dates: start: 20060101
  12. LIPITOR [Concomitant]
     Indication: BLOOD CHOLESTEROL INCREASED
     Dosage: UNK
     Route: 048

REACTIONS (6)
  - BLOOD PRESSURE INCREASED [None]
  - COLD SWEAT [None]
  - HELICOBACTER INFECTION [None]
  - HYPERGLYCAEMIA [None]
  - NAUSEA [None]
  - VOMITING [None]
